FAERS Safety Report 13928199 (Version 1)
Quarter: 2017Q3

REPORT INFORMATION
  Report Type: Spontaneous
  Country: IE (occurrence: IE)
  Receive Date: 20170901
  Receipt Date: 20170901
  Transmission Date: 20171127
  Serious: Yes (Hospitalization, Other)
  Sender: FDA-Public Use
  Company Number: IE-ALKEM LABORATORIES LIMITED-IE-ALKEM-2017-00570

PATIENT
  Age: 76 Year
  Sex: Male

DRUGS (1)
  1. QUETIAPINE FUMARATE. [Suspect]
     Active Substance: QUETIAPINE FUMARATE
     Indication: PARKINSONISM
     Dosage: UNKNOWN
     Route: 065

REACTIONS (5)
  - Aggression [Recovered/Resolved]
  - Focal dyscognitive seizures [Recovered/Resolved]
  - Catatonia [Recovered/Resolved]
  - Sexually inappropriate behaviour [Recovered/Resolved]
  - Hallucination [Recovered/Resolved]
